FAERS Safety Report 8389697 (Version 4)
Quarter: 2012Q4

REPORT INFORMATION
  Report Type: 
  Country: US (occurrence: US)
  Receive Date: 20120203
  Receipt Date: 20120920
  Transmission Date: 20130627
  Serious: Yes (Death, Hospitalization, Other)
  Sender: FDA-Public Use
  Company Number: US-ELI_LILLY_AND_COMPANY-US201110006188

PATIENT
  Age: 69 None
  Sex: Male

DRUGS (4)
  1. FORTEO [Suspect]
     Indication: OSTEOPOROSIS
     Dosage: 20 ug, qd
     Route: 065
  2. FORTEO [Suspect]
     Dosage: 20 ug, qd
     Route: 065
  3. FORTEO [Suspect]
     Dosage: 20 ug, qd
     Route: 065
     Dates: end: 201112
  4. INSULIN [Concomitant]
     Dosage: UNK
     Route: 065

REACTIONS (9)
  - Cardiac failure chronic [Fatal]
  - Chronic obstructive pulmonary disease [Fatal]
  - Dehydration [Unknown]
  - Bone pain [Unknown]
  - Blood pressure fluctuation [Unknown]
  - Chest pain [Unknown]
  - Pain [Unknown]
  - Muscle spasms [Unknown]
  - Drug dose omission [Unknown]
